FAERS Safety Report 9131400 (Version 1)
Quarter: 2013Q1

REPORT INFORMATION
  Report Type: Spontaneous
  Country: US (occurrence: US)
  Receive Date: 20130301
  Receipt Date: 20130301
  Transmission Date: 20140127
  Serious: Yes (Death)
  Sender: FDA-Public Use
  Company Number: US-PFIZER INC-2013073254

PATIENT
  Sex: 0

DRUGS (1)
  1. XALKORI [Suspect]
     Indication: LUNG CANCER METASTATIC
     Dosage: UNK

REACTIONS (2)
  - Disease progression [Fatal]
  - Lung cancer metastatic [Fatal]
